FAERS Safety Report 8226142-0 (Version None)
Quarter: 2012Q1

REPORT INFORMATION
  Report Type: 
  Country: None (occurrence: None)
  Receive Date: 20120319
  Receipt Date: 20120307
  Transmission Date: 20120608
  Serious: Yes (Death)
  Sender: FDA-Public Use
  Company Number: ENTC2012-0095

PATIENT
  Age: 86 Year
  Sex: Male

DRUGS (1)
  1. STALEVO 100 [Suspect]
     Dosage: UNKNOWN

REACTIONS (1)
  - GENERAL PHYSICAL HEALTH DETERIORATION [None]
